FAERS Safety Report 5356830-5 (Version None)
Quarter: 2007Q2

REPORT INFORMATION
  Report Type: 
  Country: None (occurrence: None)
  Receive Date: 20070614
  Receipt Date: 20061002
  Transmission Date: 20071010
  Serious: No
  Sender: FDA-Public Use
  Company Number: US-ASTRAZENECA-2006UW19077

PATIENT
  Age: 80 Year
  Sex: Female
  Weight: 90.3 kg

DRUGS (4)
  1. ATACAND [Suspect]
     Indication: HYPERTENSION
     Route: 048
  2. ASPIRIN [Concomitant]
  3. TIMOLOL MALEATE [Concomitant]
     Route: 047
  4. XALATAN [Concomitant]

REACTIONS (1)
  - HALLUCINATION [None]
